FAERS Safety Report 12560237 (Version 1)
Quarter: 2016Q3

REPORT INFORMATION
  Report Type: Spontaneous
  Country: US (occurrence: None)
  Receive Date: 20160714
  Receipt Date: 20160714
  Transmission Date: 20161109
  Serious: Yes (Disabling)
  Sender: FDA-Public Use
  Company Number: None

PATIENT
  Age: 38 Year
  Sex: Female
  Weight: 68.04 kg

DRUGS (3)
  1. PRENATAL VITAMIN [Concomitant]
     Active Substance: VITAMINS
  2. MIRENA [Suspect]
     Active Substance: LEVONORGESTREL
     Dates: start: 20160309, end: 20160711
  3. CALCIUM CARBONATE. [Concomitant]
     Active Substance: CALCIUM CARBONATE

REACTIONS (4)
  - Aura [None]
  - Libido decreased [None]
  - Migraine [None]
  - Suppressed lactation [None]

NARRATIVE: CASE EVENT DATE: 20160420
